FAERS Safety Report 9424766 (Version 1)
Quarter: 2013Q3

REPORT INFORMATION
  Report Type: Spontaneous
  Country: GB (occurrence: None)
  Receive Date: 20130724
  Receipt Date: 20130724
  Transmission Date: 20140515
  Serious: Yes (Other)
  Sender: FDA-Public Use
  Company Number: GER/UKI/13/0032676

PATIENT
  Age: 40 Year
  Sex: Female
  Weight: 100 kg

DRUGS (2)
  1. SERTRALINE (SERTRALINE) [Suspect]
     Indication: DEPRESSED MOOD
     Route: 048
     Dates: start: 20130312, end: 20130627
  2. HYDROCORTISONE CREAM PBG (HYDROCORTISONE) [Concomitant]

REACTIONS (2)
  - Amenorrhoea [None]
  - Ovarian failure [None]
